FAERS Safety Report 18322256 (Version 1)
Quarter: 2020Q3

REPORT INFORMATION
  Report Type: Spontaneous
  Country: US (occurrence: US)
  Receive Date: 20200929
  Receipt Date: 20200929
  Transmission Date: 20201103
  Serious: Yes (Hospitalization, Other)
  Sender: FDA-Public Use
  Company Number: US-GLENMARK PHARMACEUTICALS-2020GMK049694

PATIENT
  Age: 39 Year
  Sex: Male

DRUGS (1)
  1. CLOTRIMAZOLE. [Suspect]
     Active Substance: CLOTRIMAZOLE
     Indication: ORAL CANDIDIASIS
     Dosage: 5 DOSAGE FORM, QD (5 TIMES DAILY FOR ORAL THRUSH, TROCHE)
     Route: 048

REACTIONS (8)
  - Jaundice cholestatic [Recovering/Resolving]
  - Venoocclusive disease [Recovering/Resolving]
  - Cholestasis [Recovering/Resolving]
  - Weight decreased [Recovering/Resolving]
  - Drug-induced liver injury [Recovering/Resolving]
  - Cholelithiasis [Recovered/Resolved]
  - Cholecystitis acute [Recovering/Resolving]
  - Pancreatitis [Unknown]
